FAERS Safety Report 17141531 (Version 2)
Quarter: 2020Q1

REPORT INFORMATION
  Report Type: Spontaneous
  Country: US (occurrence: US)
  Receive Date: 20191211
  Receipt Date: 20200210
  Transmission Date: 20200409
  Serious: No
  Sender: FDA-Public Use
  Company Number: US-SA-2019SA341948

PATIENT
  Age: 13 Year
  Sex: Female

DRUGS (1)
  1. DUPIXENT [Suspect]
     Active Substance: DUPILUMAB
     Indication: PRODUCT USED FOR UNKNOWN INDICATION
     Dosage: 200 MG, QOW
     Route: 058
     Dates: start: 201908

REACTIONS (8)
  - Eye inflammation [Unknown]
  - Vision blurred [Unknown]
  - Ocular hyperaemia [Unknown]
  - Product dose omission [Unknown]
  - Eye pruritus [Unknown]
  - Eye swelling [Unknown]
  - Photophobia [Unknown]
  - Dry eye [Unknown]
